FAERS Safety Report 8445472-0 (Version None)
Quarter: 2012Q2

REPORT INFORMATION
  Report Type: 
  Country: None (occurrence: None)
  Receive Date: 20120618
  Receipt Date: 20120612
  Transmission Date: 20120825
  Serious: Yes (Other)
  Sender: FDA-Public Use
  Company Number: PHHY2012DE051194

PATIENT
  Age: 32 Year
  Sex: Female

DRUGS (3)
  1. VINORELBINE [Suspect]
     Indication: BREAST CANCER METASTATIC
     Dosage: 30 MG/KG, WEEKLY BASIS
  2. TRASTUZUMAB [Suspect]
     Indication: BREAST CANCER METASTATIC
     Dosage: 6 MG/KG, WEEKLY BASIS
  3. IBANDRONATE SODIUM [Suspect]
     Indication: BREAST CANCER METASTATIC
     Dosage: 6 MG, WEEKLY BASIS

REACTIONS (3)
  - OLIGOHYDRAMNIOS [None]
  - PREMATURE LABOUR [None]
  - MATERNAL EXPOSURE DURING PREGNANCY [None]
